FAERS Safety Report 9928849 (Version 3)
Quarter: 2014Q2

REPORT INFORMATION
  Report Type: Spontaneous
  Country: IT (occurrence: IT)
  Receive Date: 20140227
  Receipt Date: 20140508
  Transmission Date: 20141212
  Serious: Yes (Hospitalization)
  Sender: FDA-Public Use
  Company Number: IT-SA-2014SA020482

PATIENT
  Age: 67 Year
  Sex: Female

DRUGS (13)
  1. OXALIPLATIN [Suspect]
     Indication: RECTAL CANCER
     Route: 042
     Dates: start: 20131203, end: 20140122
  2. RETACRIT [Concomitant]
  3. CARDIOASPIRIN [Concomitant]
  4. DUROGESIC [Concomitant]
  5. CARDICOR [Concomitant]
  6. NITRODERM TTS [Concomitant]
  7. LAEVOLAC [Concomitant]
  8. FERLIXIT [Concomitant]
  9. ANTRA [Concomitant]
  10. SOLDESAM [Concomitant]
     Route: 048
  11. ZIRTEC [Concomitant]
  12. ACYCLOVIR [Concomitant]
  13. ALBUMIN [Concomitant]

REACTIONS (6)
  - Chest discomfort [Recovered/Resolved]
  - Cardiac fibrillation [Recovered/Resolved]
  - Respiratory failure [Recovered/Resolved]
  - Vomiting [Recovered/Resolved]
  - Hyperhidrosis [Unknown]
  - Throat irritation [Unknown]
